FAERS Safety Report 6996797-7 (Version None)
Quarter: 2010Q3

REPORT INFORMATION
  Report Type: 
  Country: None (occurrence: None)
  Receive Date: 20100918
  Receipt Date: 20090713
  Transmission Date: 20110219
  Serious: No
  Sender: FDA-Public Use
  Company Number: US-WYE-H10118509

PATIENT
  Sex: Female
  Weight: 56.75 kg

DRUGS (5)
  1. EFFEXOR XR [Suspect]
     Indication: MIGRAINE
     Route: 048
     Dates: start: 20020101, end: 20090622
  2. EFFEXOR XR [Suspect]
     Route: 048
     Dates: start: 20090623, end: 20090629
  3. EFFEXOR XR [Suspect]
     Route: 048
     Dates: start: 20090630, end: 20090706
  4. VERAPAMIL HYDROCHLORIDE [Concomitant]
  5. TOPAMAX [Concomitant]

REACTIONS (11)
  - ABNORMAL DREAMS [None]
  - CONDITION AGGRAVATED [None]
  - CONFUSIONAL STATE [None]
  - DISTURBANCE IN ATTENTION [None]
  - DRUG WITHDRAWAL SYNDROME [None]
  - MIGRAINE [None]
  - MUSCLE TWITCHING [None]
  - NAUSEA [None]
  - NIGHTMARE [None]
  - PARAESTHESIA [None]
  - PRURITUS [None]
